FAERS Safety Report 20069613 (Version 1)
Quarter: 2021Q4

REPORT INFORMATION
  Report Type: Spontaneous
  Country: US (occurrence: None)
  Receive Date: 20211114
  Receipt Date: 20211114
  Transmission Date: 20220303
  Serious: Yes (Death, Life-Threatening, Hospitalization, Disabling)
  Sender: FDA-Public Use
  Company Number: None

PATIENT
  Age: 37 Year
  Sex: Female
  Weight: 69.75 kg

DRUGS (2)
  1. CLINDAMYCIN [Suspect]
     Active Substance: CLINDAMYCIN
     Indication: Tooth infection
  2. NAPROXEN [Suspect]
     Active Substance: NAPROXEN
     Indication: Oral pain

REACTIONS (7)
  - Hepatic failure [None]
  - Acute kidney injury [None]
  - Drug reaction with eosinophilia and systemic symptoms [None]
  - Dialysis [None]
  - Visual impairment [None]
  - Alopecia [None]
  - Septic shock [None]
